FAERS Safety Report 10048684 (Version 1)
Quarter: 2014Q1

REPORT INFORMATION
  Report Type: Spontaneous
  Country: BR (occurrence: BR)
  Receive Date: 20140331
  Receipt Date: 20140331
  Transmission Date: 20141002
  Serious: Yes (Hospitalization)
  Sender: FDA-Public Use
  Company Number: BR-PFIZER INC-2014088418

PATIENT
  Age: 77 Year
  Sex: Male
  Weight: 62 kg

DRUGS (3)
  1. LIPITOR [Suspect]
     Dosage: UNK, 1X/DAY (40 MG STRENGTH)
     Route: 048
     Dates: start: 20051013
  2. ALDACTONE [Concomitant]
     Dosage: UNK, 1X/DAY (50 MG STRENGTH)
  3. PANTOPRAZOLE [Concomitant]
     Dosage: UNK, (20 MG STRENGTH)

REACTIONS (1)
  - Oesophageal haemorrhage [Unknown]
